FAERS Safety Report 7173788-7 (Version None)
Quarter: 2010Q4

REPORT INFORMATION
  Report Type: 
  Country: None (occurrence: None)
  Receive Date: 20101202
  Receipt Date: 20101117
  Transmission Date: 20110411
  Serious: Yes (Hospitalization)
  Sender: FDA-Public Use
  Company Number: DSJ-2010-20809

PATIENT
  Age: 85 Year
  Sex: Female

DRUGS (5)
  1. AMLODIPINE BESYLATE AND OLMESARTAN MEDOXOMIL [Suspect]
     Indication: HYPERTENSION
     Dosage: 40/10 MG (1 IN 1 D), PER ORAL
     Route: 048
     Dates: start: 20080101, end: 20101108
  2. LATANOPROST (LATANOPROST) (LATANOPROST) [Concomitant]
  3. DORZOLAMIDE (DORZOLAMIDE) (DORZOLAMIDE) [Concomitant]
  4. BRIMONIDINE (BRIMONIDINE) (BRIMONIDINE) [Concomitant]
  5. IRON (IRON) (IRON) [Concomitant]

REACTIONS (4)
  - HYPONATRAEMIA [None]
  - HYPOTENSION [None]
  - INFLUENZA [None]
  - MUSCULAR WEAKNESS [None]
